FAERS Safety Report 7563010-1 (Version None)
Quarter: 2011Q2

REPORT INFORMATION
  Report Type: 
  Country: None (occurrence: None)
  Receive Date: 20110622
  Receipt Date: 20110613
  Transmission Date: 20111010
  Serious: Yes (Hospitalization, Other)
  Sender: FDA-Public Use
  Company Number: US-ACTELION-A-US2010-41233

PATIENT

DRUGS (2)
  1. TRACLEER [Suspect]
     Indication: PULMONARY ARTERIAL HYPERTENSION
     Dosage: 62.5 MG, BID
     Route: 048
     Dates: start: 20100915, end: 20110105
  2. VIAGRA [Concomitant]

REACTIONS (5)
  - UROSEPSIS [None]
  - DYSPNOEA [None]
  - FLUID RETENTION [None]
  - WEIGHT INCREASED [None]
  - OEDEMA [None]
